FAERS Safety Report 11831815 (Version 1)
Quarter: 2015Q4

REPORT INFORMATION
  Report Type: Spontaneous
  Country: IT (occurrence: IT)
  Receive Date: 20151214
  Receipt Date: 20151214
  Transmission Date: 20160305
  Serious: Yes (Other)
  Sender: FDA-Public Use
  Company Number: IT-BAYER-2015-486245

PATIENT
  Age: 74 Year
  Sex: Female
  Weight: 43 kg

DRUGS (5)
  1. NOVONORM [Concomitant]
     Active Substance: REPAGLINIDE
     Indication: TYPE 2 DIABETES MELLITUS
     Dosage: DAILY DOSE 3 MG
     Route: 048
  2. GLUCOPHAGE [Concomitant]
     Active Substance: METFORMIN HYDROCHLORIDE
     Indication: TYPE 2 DIABETES MELLITUS
     Dosage: DAILY DOSE 500 MG
     Route: 048
  3. ZANEDIP [Concomitant]
     Active Substance: LERCANIDIPINE HYDROCHLORIDE
     Indication: HYPERTENSION
     Dosage: DAILY DOSE 10 MG
     Route: 048
  4. CIPROXIN [Suspect]
     Active Substance: CIPROFLOXACIN
     Indication: LUNG INFECTION
     Dosage: DAILY DOSE 1 G
     Route: 048
     Dates: end: 20090531
  5. LYRICA [Concomitant]
     Active Substance: PREGABALIN
     Dosage: DAILY DOSE 75 MG
     Route: 048

REACTIONS (1)
  - Localised oedema [Recovered/Resolved]

NARRATIVE: CASE EVENT DATE: 20090531
